FAERS Safety Report 8203070-8 (Version None)
Quarter: 2012Q1

REPORT INFORMATION
  Report Type: 
  Country: None (occurrence: None)
  Receive Date: 20120312
  Receipt Date: 20120301
  Transmission Date: 20120608
  Serious: Yes (Hospitalization)
  Sender: FDA-Public Use
  Company Number: JP-ASTRAZENECA-2011SE77368

PATIENT
  Age: 72 Year
  Sex: Male
  Weight: 72 kg

DRUGS (4)
  1. CRESTOR [Suspect]
     Route: 048
     Dates: start: 20110719, end: 20111117
  2. CRESTOR [Suspect]
     Indication: HYPERCHOLESTEROLAEMIA
     Route: 048
     Dates: start: 20110608, end: 20110718
  3. CASODEX [Suspect]
     Indication: PROSTATE CANCER
     Route: 048
  4. LEUPROLIDE ACETATE [Suspect]
     Indication: CANCER HORMONAL THERAPY
     Route: 058
     Dates: start: 20111116

REACTIONS (1)
  - RHABDOMYOLYSIS [None]
